FAERS Safety Report 5310939-0 (Version None)
Quarter: 2007Q2

REPORT INFORMATION
  Report Type: 
  Country: None (occurrence: None)
  Receive Date: 20070427
  Receipt Date: 20070427
  Transmission Date: 20071010
  Serious: Yes (Other)
  Sender: FDA-Public Use
  Company Number: None

PATIENT
  Sex: Female
  Weight: 90.7194 kg

DRUGS (2)
  1. ZICAM ORAL MIST  MATRIXX INITIATIVES, INC [Suspect]
     Indication: NASOPHARYNGITIS
     Dosage: SPRAY 4 X IN MOUTH/SWALLOW  EVERY THREE HOURS  PO  USED 1 X ONLY
     Route: 048
     Dates: start: 20070409
  2. ZICAM GEL SWABS  MATRIXX INITIATIVES, INC [Suspect]
     Indication: NASOPHARYNGITIS
     Dosage: APPLY SWAB INSIDE NOSTRIL  EVERY THREE HOURS  NASAL
     Route: 045
     Dates: start: 20070410, end: 20070413

REACTIONS (2)
  - ANOSMIA [None]
  - HYPOGEUSIA [None]
